FAERS Safety Report 11150942 (Version 1)
Quarter: 2015Q2

REPORT INFORMATION
  Report Type: Spontaneous
  Country: RU (occurrence: None)
  Receive Date: 20150528
  Receipt Date: 20150528
  Transmission Date: 20150821
  Serious: Yes (Hospitalization, Other)
  Sender: FDA-Public Use
  Company Number: RU2015GSK069614

PATIENT
  Sex: Female

DRUGS (5)
  1. STAVUDINE (STAVUDINE) [Suspect]
     Active Substance: STAVUDINE
     Indication: HIV INFECTION
  2. INVIRASE [Suspect]
     Active Substance: SAQUINAVIR MESYLATE
     Indication: HIV INFECTION
  3. RITONAVIR (RITONAVIR) [Suspect]
     Active Substance: RITONAVIR
     Indication: HIV INFECTION
  4. EPIVIR [Suspect]
     Active Substance: LAMIVUDINE
     Indication: HIV INFECTION
  5. KALETRA [Suspect]
     Active Substance: LOPINAVIR\RITONAVIR
     Indication: HIV INFECTION

REACTIONS (6)
  - Aspartate aminotransferase increased [None]
  - Hypersensitivity [None]
  - Tuberculosis [None]
  - Toxicity to various agents [None]
  - Allergic oedema [None]
  - Alanine aminotransferase increased [None]

NARRATIVE: CASE EVENT DATE: 201504
